FAERS Safety Report 13088784 (Version 6)
Quarter: 2018Q1

REPORT INFORMATION
  Report Type: Spontaneous
  Country: JP (occurrence: JP)
  Receive Date: 20170105
  Receipt Date: 20180112
  Transmission Date: 20180508
  Serious: Yes (Life-Threatening, Hospitalization, Disabling, Other)
  Sender: FDA-Public Use
  Company Number: JP-ACTELION-A-CH2016-147528

PATIENT
  Age: 61 Year
  Sex: Female

DRUGS (9)
  1. ADEMPAS [Concomitant]
     Active Substance: RIOCIGUAT
  2. ALDACTONE A [Concomitant]
     Active Substance: SPIRONOLACTONE
  3. WARFARIN [Concomitant]
     Active Substance: WARFARIN
  4. CRESTOR [Concomitant]
     Active Substance: ROSUVASTATIN CALCIUM
  5. OXYGEN. [Concomitant]
     Active Substance: OXYGEN
  6. OPSUMIT [Suspect]
     Active Substance: MACITENTAN
     Indication: PULMONARY HYPERTENSION
     Dosage: 10 MG, OD
     Route: 048
     Dates: start: 20151208, end: 20161207
  7. CARELOAD [Suspect]
     Active Substance: BERAPROST SODIUM
     Indication: PULMONARY HYPERTENSION
     Dosage: 720 ?G, QD
     Route: 048
     Dates: start: 20161207
  8. LASIX [Concomitant]
     Active Substance: FUROSEMIDE
  9. ALOSENN [Concomitant]
     Active Substance: SENNA LEAF

REACTIONS (14)
  - Leukoencephalopathy [Recovering/Resolving]
  - Rhinorrhoea [Recovering/Resolving]
  - Dyspnoea [Recovering/Resolving]
  - Anxiety [Recovering/Resolving]
  - Pneumonia [Recovering/Resolving]
  - Altered state of consciousness [Recovering/Resolving]
  - General physical health deterioration [Recovering/Resolving]
  - Body temperature increased [Recovering/Resolving]
  - Muscular weakness [Unknown]
  - Bipolar I disorder [Recovering/Resolving]
  - Pyrexia [Recovering/Resolving]
  - Respiratory disorder [Recovering/Resolving]
  - Guillain-Barre syndrome [Recovering/Resolving]
  - Concomitant disease aggravated [Recovering/Resolving]

NARRATIVE: CASE EVENT DATE: 20161124
